FAERS Safety Report 21301567 (Version 1)
Quarter: 2022Q3

REPORT INFORMATION
  Report Type: Spontaneous
  Country: SG (occurrence: SG)
  Receive Date: 20220907
  Receipt Date: 20220907
  Transmission Date: 20221027
  Serious: Yes (Life-Threatening, Hospitalization)
  Sender: FDA-Public Use
  Company Number: SG-MYLANLABS-2022M1091823

PATIENT
  Sex: Female

DRUGS (12)
  1. EPINEPHRINE [Suspect]
     Active Substance: EPINEPHRINE
     Indication: Vasoplegia syndrome
     Dosage: 1 MICROGRAM/KILOGRAM, QMINUTE
     Route: 065
  2. ACTIVATED CHARCOAL [Suspect]
     Active Substance: ACTIVATED CHARCOAL
     Indication: Toxicity to various agents
     Dosage: UNK
     Route: 065
  3. NOREPINEPHRINE [Suspect]
     Active Substance: NOREPINEPHRINE
     Indication: Vasoplegia syndrome
     Dosage: 0.15 MICROGRAM/KILOGRAM, QMINUTE
     Route: 065
  4. VASOPRESSIN [Suspect]
     Active Substance: VASOPRESSIN
     Indication: Vasoplegia syndrome
     Dosage: UNK, 1.8 UNITS/HOUR
     Route: 065
  5. DOPAMINE [Suspect]
     Active Substance: DOPAMINE HYDROCHLORIDE
     Indication: Vasoplegia syndrome
     Dosage: 20 MICROGRAM/KILOGRAM, QMINUTE
     Route: 065
  6. CALCIUM GLUCONATE [Suspect]
     Active Substance: CALCIUM GLUCONATE
     Indication: Toxicity to various agents
     Dosage: 30 MILLILITER
     Route: 065
  7. CALCIUM GLUCONATE [Suspect]
     Active Substance: CALCIUM GLUCONATE
     Dosage: 20 MILLILITER
     Route: 065
  8. CALCIUM CHLORIDE [Suspect]
     Active Substance: CALCIUM CHLORIDE
     Indication: Toxicity to various agents
     Dosage: UNK, INFUSION
     Route: 065
  9. METHYLENE BLUE [Suspect]
     Active Substance: METHYLENE BLUE
     Indication: Toxicity to various agents
     Dosage: 1 MILLIGRAM/KILOGRAM, BOLUS
     Route: 065
  10. INSULIN NOS [Suspect]
     Active Substance: INSULIN NOS
     Indication: Toxicity to various agents
     Dosage: UNK, 1 UNIT/KG, BOLUS
     Route: 065
  11. INSULIN NOS [Suspect]
     Active Substance: INSULIN NOS
     Dosage: UNK,1 UNIT/KG- SECOND BOLUS, BOLUS
     Route: 065
  12. INSULIN NOS [Suspect]
     Active Substance: INSULIN NOS
     Indication: Toxicity to various agents
     Dosage: UNK, QH, 1 UNIT/KG
     Route: 065

REACTIONS (1)
  - Drug ineffective [Unknown]
